FAERS Safety Report 5730141-8 (Version None)
Quarter: 2008Q2

REPORT INFORMATION
  Report Type: 
  Country: None (occurrence: None)
  Receive Date: 20080505
  Receipt Date: 20080505
  Transmission Date: 20081010
  Serious: Yes (Hospitalization)
  Sender: FDA-Public Use
  Company Number: None

PATIENT
  Age: 71 Year
  Sex: Female

DRUGS (4)
  1. DILTIAZEM [Suspect]
     Indication: HYPERTENSION
     Dosage: ORAL;180.0 MG Q24H
     Route: 048
  2. ALENDRONATE SODIUM [Concomitant]
  3. GLIPZIDE XL [Concomitant]
  4. ESOMEPRAZOLE [Concomitant]

REACTIONS (4)
  - ABDOMINAL ADHESIONS [None]
  - MEDICATION RESIDUE [None]
  - PHARMACEUTICAL PRODUCT COMPLAINT [None]
  - SMALL INTESTINAL OBSTRUCTION [None]
